FAERS Safety Report 4768518-X (Version None)
Quarter: 2005Q3

REPORT INFORMATION
  Report Type: 
  Country: None (occurrence: None)
  Receive Date: 20050913
  Receipt Date: 20050831
  Transmission Date: 20060218
  Serious: Yes (Hospitalization, Other)
  Sender: FDA-Public Use
  Company Number: 2005122866

PATIENT
  Age: 50 Year
  Sex: Male

DRUGS (1)
  1. ZIPRASIDONE (CAPS)  (ZIPRASIDONE) [Suspect]
     Indication: SCHIZOPHRENIA, PARANOID TYPE
     Dosage: 80 MG (40 MG, 2 IN 1 D)

REACTIONS (7)
  - CONVULSION [None]
  - DISORIENTATION [None]
  - ECCHYMOSIS [None]
  - HALLUCINATION, AUDITORY [None]
  - POLYDIPSIA [None]
  - REFUSAL OF TREATMENT BY PATIENT [None]
  - RHABDOMYOLYSIS [None]
